FAERS Safety Report 15719295 (Version 1)
Quarter: 2018Q4

REPORT INFORMATION
  Report Type: Spontaneous
  Country: US (occurrence: US)
  Receive Date: 20181213
  Receipt Date: 20181213
  Transmission Date: 20190205
  Serious: Yes (Other)
  Sender: FDA-Public Use
  Company Number: US-PFIZER INC-2018350450

PATIENT
  Age: 61 Year
  Sex: Male
  Weight: 84.37 kg

DRUGS (3)
  1. VIAGRA [Suspect]
     Active Substance: SILDENAFIL CITRATE
     Dosage: 25 MG, DAILY
  2. VIAGRA [Suspect]
     Active Substance: SILDENAFIL CITRATE
     Dosage: 100 MG, AS NEEDED (EVERYDAY)
     Route: 048
  3. VIAGRA [Suspect]
     Active Substance: SILDENAFIL CITRATE
     Indication: ERECTILE DYSFUNCTION
     Dosage: 100 MG, AS NEEDED (EVERYDAY)
     Route: 048

REACTIONS (3)
  - Product use in unapproved indication [Unknown]
  - Prostate cancer [Unknown]
  - Product use issue [Unknown]

NARRATIVE: CASE EVENT DATE: 201804
